FAERS Safety Report 8972657 (Version 1)
Quarter: 2012Q4

REPORT INFORMATION
  Report Type: 
  Country: IE (occurrence: IE)
  Receive Date: 20121218
  Receipt Date: 20121218
  Transmission Date: 20130627
  Serious: Yes (Hospitalization, Other)
  Sender: FDA-Public Use
  Company Number: IE-ELI_LILLY_AND_COMPANY-IE201212003110

PATIENT
  Age: 15 Year
  Sex: Female

DRUGS (4)
  1. PROZAC [Suspect]
     Indication: DEPRESSION
     Dosage: 20 mg, UNK
     Route: 048
     Dates: start: 201106
  2. PROZAC [Suspect]
     Dosage: 40 mg, UNK
     Dates: end: 201204
  3. CIRCADIN [Concomitant]
     Indication: SLEEP DISORDER
     Dosage: 6 mg, UNK
     Route: 048
     Dates: start: 201106, end: 201201
  4. PHENERGAN [Concomitant]
     Indication: SLEEP DISORDER
     Dosage: 25 mg, UNK
     Dates: start: 201201, end: 201204

REACTIONS (6)
  - Intentional self-injury [Recovering/Resolving]
  - Emotional disorder [Recovering/Resolving]
  - Intentional overdose [Recovering/Resolving]
  - Suicidal ideation [Recovering/Resolving]
  - Thinking abnormal [Recovering/Resolving]
  - Intentional drug misuse [Unknown]
